FAERS Safety Report 8362501 (Version 3)
Quarter: 2015Q1

REPORT INFORMATION
  Report Type: Report from Study
  Country: US (occurrence: US)
  Receive Date: 20120130
  Receipt Date: 20150226
  Transmission Date: 20150721
  Serious: Yes (Death, Hospitalization)
  Sender: FDA-Public Use
  Company Number: US-ROCHE-1034558

PATIENT
  Age: 62 Year
  Sex: Female

DRUGS (11)
  1. GEMCITABINE [Concomitant]
     Active Substance: GEMCITABINE\GEMCITABINE HYDROCHLORIDE
     Route: 065
     Dates: start: 20060208, end: 20060705
  2. TAXOL [Concomitant]
     Active Substance: PACLITAXEL
     Route: 065
     Dates: start: 20060208, end: 20060705
  3. TENORMIN [Concomitant]
     Active Substance: ATENOLOL
     Route: 065
  4. ZOMETA [Concomitant]
     Active Substance: ZOLEDRONIC ACID
     Indication: BRONCHITIS
     Route: 065
  5. XELODA [Suspect]
     Active Substance: CAPECITABINE
     Indication: PRODUCT USED FOR UNKNOWN INDICATION
     Route: 065
     Dates: start: 200408, end: 200601
  6. AVASTIN [Suspect]
     Active Substance: BEVACIZUMAB
     Indication: BREAST CANCER FEMALE
     Route: 042
     Dates: start: 20071120
  7. AROMASIN [Concomitant]
     Active Substance: EXEMESTANE
     Route: 065
     Dates: start: 20070529, end: 20070925
  8. TAXOTERE [Concomitant]
     Active Substance: DOCETAXEL
     Dosage: EVERY 28 DAYS
     Route: 065
     Dates: start: 20020102
  9. PRILOSEC [Concomitant]
     Active Substance: OMEPRAZOLE MAGNESIUM
     Indication: BRONCHITIS
     Route: 065
  10. PERCOCET [Concomitant]
     Active Substance: ACETAMINOPHEN\OXYCODONE HYDROCHLORIDE
     Route: 065
  11. LEVAQUIN [Concomitant]
     Active Substance: LEVOFLOXACIN
     Indication: BRONCHITIS
     Route: 065

REACTIONS (19)
  - Haemoptysis [Unknown]
  - Hypotension [Unknown]
  - Arteriosclerosis [Unknown]
  - Insomnia [Unknown]
  - Orthopnoea [Unknown]
  - Increased tendency to bruise [Unknown]
  - Headache [Unknown]
  - Haemorrhagic diathesis [Unknown]
  - Pleural effusion [Unknown]
  - Bronchitis [Unknown]
  - Off label use [Unknown]
  - Fatigue [Unknown]
  - Vulvovaginal mycotic infection [Unknown]
  - Dyspnoea exertional [Unknown]
  - Decreased appetite [Unknown]
  - Death [Fatal]
  - Disease progression [Unknown]
  - Asthenia [Unknown]
  - Lymphadenopathy [Unknown]

NARRATIVE: CASE EVENT DATE: 20071207
